FAERS Safety Report 8435445-6 (Version None)
Quarter: 2012Q2

REPORT INFORMATION
  Report Type: 
  Country: None (occurrence: None)
  Receive Date: 20120614
  Receipt Date: 20120605
  Transmission Date: 20120825
  Serious: Yes (Hospitalization)
  Sender: FDA-Public Use
  Company Number: US-BAYER-US-2007-000651

PATIENT
  Age: 38 Year
  Sex: Female
  Weight: 61 kg

DRUGS (5)
  1. INDOMETHACIN [Concomitant]
     Dosage: UNK
     Route: 048
     Dates: start: 20060803
  2. YASMIN [Suspect]
     Dosage: 1 TAB(S), 1X/DAY [DAILY DOSE: 1 TAB(S)]
     Route: 048
     Dates: start: 20051101, end: 20060801
  3. FLUVOXAMINE MALEATE [Concomitant]
     Dosage: 50 MG, UNK
     Route: 048
     Dates: start: 20060524
  4. FLUOXETINE [Concomitant]
     Dosage: 20 MG, UNK
     Route: 048
     Dates: start: 20060605
  5. CEFTIN [Concomitant]

REACTIONS (3)
  - PULMONARY EMBOLISM [None]
  - CHEST PAIN [None]
  - DYSPNOEA [None]
